FAERS Safety Report 9128028 (Version 1)
Quarter: 2013Q1

REPORT INFORMATION
  Report Type: Report from Study
  Country: KR (occurrence: KR)
  Receive Date: 20130125
  Receipt Date: 20130125
  Transmission Date: 20140127
  Serious: Yes (Life-Threatening)
  Sender: FDA-Public Use
  Company Number: KR-NAPPMUNDI-GBR-2012-0012958

PATIENT
  Sex: Male

DRUGS (3)
  1. OXY IR [Suspect]
     Indication: CANCER PAIN
     Dosage: 5 MG, DAILY
     Route: 048
     Dates: start: 20101111
  2. OXY IR [Suspect]
     Dosage: 40 MG, DAILY
     Route: 048
     Dates: start: 20100506
  3. TRAMADOL [Concomitant]
     Dosage: 150 MG, DAILY
     Dates: start: 20110118

REACTIONS (1)
  - Urinary retention [Unknown]
